FAERS Safety Report 11376749 (Version 7)
Quarter: 2015Q4

REPORT INFORMATION
  Report Type: Report from Study
  Country: FR (occurrence: FR)
  Receive Date: 20150813
  Receipt Date: 20151013
  Transmission Date: 20160304
  Serious: Yes (Life-Threatening, Hospitalization, Other)
  Sender: FDA-Public Use
  Company Number: FR-GLAXOSMITHKLINE-FR2015GSK110032

PATIENT
  Age: 40 Year
  Sex: Female
  Weight: 82 kg

DRUGS (12)
  1. DABRAFENIB [Suspect]
     Active Substance: DABRAFENIB
     Dosage: 100 UNK, UNK
     Route: 048
     Dates: start: 20150908
  2. DABRAFENIB [Suspect]
     Active Substance: DABRAFENIB
     Indication: MALIGNANT MELANOMA
     Dosage: 150 MG, UNK
     Route: 048
     Dates: start: 20150824, end: 20150828
  3. DABRAFENIB [Suspect]
     Active Substance: DABRAFENIB
     Dosage: 100 MG, BID
     Dates: start: 20150828
  4. NORADRENALIN [Concomitant]
     Active Substance: NOREPINEPHRINE\NOREPINEPHRINE BITARTRATE
  5. THIOPENTAL [Concomitant]
     Active Substance: THIOPENTAL
  6. TRAMETINIB [Suspect]
     Active Substance: TRAMETINIB
     Indication: MALIGNANT MELANOMA
     Dosage: 2 MG, QD
     Route: 048
     Dates: start: 20150619, end: 20150729
  7. ACICLOVIR [Concomitant]
     Active Substance: ACYCLOVIR
  8. ROCEPHINE [Concomitant]
     Active Substance: CEFTRIAXONE SODIUM
  9. SPIRAMYCIN [Concomitant]
     Active Substance: SPIRAMYCIN
  10. DABRAFENIB [Suspect]
     Active Substance: DABRAFENIB
     Dosage: 100 UNK, UNK
     Route: 048
     Dates: start: 20150905
  11. DABRAFENIB [Suspect]
     Active Substance: DABRAFENIB
     Dosage: 150 UNK, UNK
     Route: 048
     Dates: start: 20150907
  12. DABRAFENIB [Suspect]
     Active Substance: DABRAFENIB
     Dosage: 75 MG, BID
     Route: 048
     Dates: start: 20140128

REACTIONS (11)
  - Renal failure [Recovered/Resolved]
  - Rhabdomyolysis [Recovered/Resolved]
  - Seizure [Recovered/Resolved]
  - Inflammation [Recovering/Resolving]
  - Anaemia [Recovering/Resolving]
  - Lymphopenia [Recovered/Resolved]
  - Pyrexia [Recovered/Resolved]
  - Inflammation [Recovered/Resolved]
  - Liver injury [Recovered/Resolved]
  - Acute respiratory distress syndrome [Recovered/Resolved]
  - Cardiac failure [Recovered/Resolved]

NARRATIVE: CASE EVENT DATE: 20150729
